FAERS Safety Report 23910009 (Version 2)
Quarter: 2024Q2

REPORT INFORMATION
  Report Type: Spontaneous
  Country: US (occurrence: US)
  Receive Date: 20240528
  Receipt Date: 20240612
  Transmission Date: 20240717
  Serious: No
  Sender: FDA-Public Use
  Company Number: US-ELI_LILLY_AND_COMPANY-US202405015317

PATIENT
  Age: 73 Year
  Sex: Male

DRUGS (2)
  1. OMVOH [Suspect]
     Active Substance: MIRIKIZUMAB-MRKZ
     Indication: Colitis ulcerative
     Dosage: 200 MG, OTHER (EVERY FOUR WEEKS)
     Route: 065
  2. OMVOH [Suspect]
     Active Substance: MIRIKIZUMAB-MRKZ
     Dosage: 200 MG, MONTHLY (1/M)
     Route: 065

REACTIONS (1)
  - Malaise [Unknown]
